FAERS Safety Report 6905899-2 (Version None)
Quarter: 2010Q3

REPORT INFORMATION
  Report Type: 
  Country: None (occurrence: None)
  Receive Date: 20100803
  Receipt Date: 20100803
  Transmission Date: 20110219
  Serious: Yes (Hospitalization)
  Sender: FDA-Public Use
  Company Number: None

PATIENT
  Sex: Female
  Weight: 98 kg

DRUGS (2)
  1. CARBOPLATIN [Suspect]
     Dosage: 560 MG
     Dates: end: 20100721
  2. ETOPOSIDE [Concomitant]
     Dosage: 627 MG
     Dates: end: 20100723

REACTIONS (1)
  - PULMONARY EMBOLISM [None]
